FAERS Safety Report 5705663-6 (Version None)
Quarter: 2008Q2

REPORT INFORMATION
  Report Type: 
  Country: None (occurrence: None)
  Receive Date: 20080415
  Receipt Date: 20080414
  Transmission Date: 20081010
  Serious: Yes (Hospitalization, Disabling)
  Sender: FDA-Public Use
  Company Number: US-BRISTOL-MYERS SQUIBB COMPANY-14130520

PATIENT
  Age: 62 Year
  Sex: Female

DRUGS (2)
  1. ERBITUX [Suspect]
     Indication: TONGUE NEOPLASM MALIGNANT STAGE UNSPECIFIED
     Dosage: 400 MG/M2 TAKEN FIRST ONE WEEK
     Route: 042
  2. RADIATION THERAPY [Suspect]

REACTIONS (1)
  - CEREBROVASCULAR ACCIDENT [None]
